FAERS Safety Report 8987813 (Version 2)
Quarter: 2013Q1

REPORT INFORMATION
  Report Type: Spontaneous
  Country: US (occurrence: US)
  Receive Date: 20121227
  Receipt Date: 20130218
  Transmission Date: 20140127
  Serious: No
  Sender: FDA-Public Use
  Company Number: US-PFIZER INC-2012326689

PATIENT
  Age: 72 Year
  Sex: Female
  Weight: 81.63 kg

DRUGS (5)
  1. TOVIAZ [Suspect]
     Indication: INCONTINENCE
     Dosage: 4 MG, DAILY
     Route: 048
     Dates: start: 20121119, end: 20121126
  2. PREMARIN [Concomitant]
     Indication: HOT FLUSH
     Dosage: 0.625 MG, DAILY
     Route: 048
  3. SYNTHROID [Concomitant]
     Indication: THYROID DISORDER
     Dosage: 0.125 MG, DAILY
  4. NEXIUM [Concomitant]
     Indication: GASTROOESOPHAGEAL REFLUX DISEASE
     Dosage: 40 MG, DAILY
  5. ATENOLOL W/CHLORTALIDONE [Concomitant]
     Indication: HYPERTENSION
     Dosage: 50/25 MG

REACTIONS (4)
  - Nail disorder [Recovering/Resolving]
  - Onychoclasis [Recovering/Resolving]
  - Onychalgia [Recovering/Resolving]
  - Sensory disturbance [Recovering/Resolving]
